FAERS Safety Report 15186905 (Version 1)
Quarter: 2018Q3

REPORT INFORMATION
  Report Type: Report from Study
  Country: US (occurrence: US)
  Receive Date: 20180723
  Receipt Date: 20180723
  Transmission Date: 20181010
  Serious: Yes (Death, Hospitalization)
  Sender: FDA-Public Use
  Company Number: US-EXELIXIS-CABO-17011790

PATIENT
  Age: 82 Year
  Sex: Male

DRUGS (11)
  1. AVODART [Concomitant]
     Active Substance: DUTASTERIDE
  2. CABOMETYX [Suspect]
     Active Substance: CABOZANTINIB S-MALATE
     Indication: RENAL CANCER
     Dosage: 60 MG, QD
     Route: 048
     Dates: start: 201708, end: 201708
  3. CEFEPIME [Concomitant]
     Active Substance: CEFEPIME HYDROCHLORIDE
  4. LOVENOX [Concomitant]
     Active Substance: ENOXAPARIN SODIUM
  5. CABOMETYX [Suspect]
     Active Substance: CABOZANTINIB S-MALATE
     Dosage: UNK
     Dates: start: 20171205, end: 20171208
  6. DULCOLAX NOS [Concomitant]
     Active Substance: BISACODYL OR DOCUSATE SODIUM
  7. DURAGESIC [Concomitant]
     Active Substance: FENTANYL
  8. CATHFLO ACTIVASE [Concomitant]
     Active Substance: ALTEPLASE
  9. PULMICORT TURBUHALER [Concomitant]
     Active Substance: BUDESONIDE
  10. DEXTROSE. [Concomitant]
     Active Substance: DEXTROSE
  11. GLUCAGON EMERGENCY KIT [Concomitant]
     Active Substance: GLUCAGON

REACTIONS (2)
  - Malignant neoplasm progression [Fatal]
  - Pathological fracture [Unknown]

NARRATIVE: CASE EVENT DATE: 20171204
